FAERS Safety Report 8428159-X (Version None)
Quarter: 2012Q2

REPORT INFORMATION
  Report Type: 
  Country: None (occurrence: None)
  Receive Date: 20120611
  Receipt Date: 20120601
  Transmission Date: 20120825
  Serious: Yes (Hospitalization)
  Sender: FDA-Public Use
  Company Number: US-PFIZER INC-2012133515

PATIENT
  Sex: Female

DRUGS (3)
  1. SPIRIVA [Suspect]
     Dosage: UNK
  2. LYRICA [Suspect]
     Dosage: UNK
  3. PROTONIX [Suspect]
     Dosage: UNK

REACTIONS (2)
  - CONFUSIONAL STATE [None]
  - CEREBROVASCULAR ACCIDENT [None]
